FAERS Safety Report 9738182 (Version 1)
Quarter: 2013Q4

REPORT INFORMATION
  Report Type: Spontaneous
  Country: NL (occurrence: NL)
  Receive Date: 20131208
  Receipt Date: 20131208
  Transmission Date: 20140711
  Serious: Yes (Death, Other)
  Sender: FDA-Public Use
  Company Number: NL-TEVA-447777ISR

PATIENT
  Sex: Male

DRUGS (5)
  1. BUMETANIDE [Suspect]
     Route: 065
  2. INSULIN [Suspect]
     Route: 065
  3. GLIMEPIRIDE [Suspect]
     Route: 065
  4. SPIRONOLACTONE [Suspect]
     Route: 065
  5. DABIGATRAN ETEXILATE [Concomitant]
     Indication: ATRIAL FIBRILLATION
     Route: 065

REACTIONS (2)
  - Renal failure acute [Fatal]
  - Hypoglycaemia [Recovered/Resolved]
